FAERS Safety Report 9706747 (Version 1)
Quarter: 2013Q4

REPORT INFORMATION
  Report Type: Spontaneous
  Country: EC (occurrence: EC)
  Receive Date: 20131125
  Receipt Date: 20131125
  Transmission Date: 20140711
  Serious: Yes (Life-Threatening)
  Sender: FDA-Public Use
  Company Number: EC-AMGEN-ECUSP2013082841

PATIENT
  Age: 38 Year
  Sex: Female

DRUGS (1)
  1. NEULASTIM [Suspect]
     Indication: BREAST CANCER
     Dosage: UNK
     Route: 065
     Dates: start: 201309

REACTIONS (1)
  - Myalgia [Recovered/Resolved]
